FAERS Safety Report 15023280 (Version 1)
Quarter: 2018Q2

REPORT INFORMATION
  Report Type: Spontaneous
  Country: FR (occurrence: FR)
  Receive Date: 20180618
  Receipt Date: 20180618
  Transmission Date: 20180711
  Serious: Yes (Death, Hospitalization)
  Sender: FDA-Public Use
  Company Number: FR-BAUSCH-BL-2018-016887

PATIENT
  Age: 76 Year
  Sex: Female
  Weight: 70 kg

DRUGS (2)
  1. IMNOVID [Suspect]
     Active Substance: POMALIDOMIDE
     Indication: PLASMA CELL MYELOMA
     Dosage: 21 DAYS / 28 DAYS
     Route: 048
     Dates: start: 201801, end: 20180426
  2. DEXAMETHASONE. [Suspect]
     Active Substance: DEXAMETHASONE
     Indication: PLASMA CELL MYELOMA
     Dosage: 20 MG 2 DAYS / WEEK (40 MG PER WEEK)
     Route: 048
     Dates: start: 201801, end: 20180426

REACTIONS (1)
  - Nocardiosis [Fatal]

NARRATIVE: CASE EVENT DATE: 20180328
